FAERS Safety Report 13498380 (Version 2)
Quarter: 2017Q3

REPORT INFORMATION
  Report Type: Report from Study
  Country: None (occurrence: US)
  Receive Date: 20170430
  Receipt Date: 20170803
  Transmission Date: 20171127
  Serious: Yes (Other)
  Sender: FDA-Public Use
  Company Number: US-ABBVIE-17K-163-1955691-00

PATIENT
  Age: 42 Year
  Sex: Female
  Weight: 70.37 kg

DRUGS (3)
  1. IMURAN [Concomitant]
     Active Substance: AZATHIOPRINE
     Indication: CROHN^S DISEASE
  2. HUMIRA [Suspect]
     Active Substance: ADALIMUMAB
     Indication: CROHN^S DISEASE
     Route: 058
     Dates: start: 201510, end: 201705
  3. HUMIRA [Suspect]
     Active Substance: ADALIMUMAB
     Route: 058
     Dates: start: 201705

REACTIONS (2)
  - Anal fissure [Recovering/Resolving]
  - Procedural pain [Recovered/Resolved]

NARRATIVE: CASE EVENT DATE: 201611
